FAERS Safety Report 9420945 (Version 1)
Quarter: 2013Q3

REPORT INFORMATION
  Report Type: Spontaneous
  Country: US (occurrence: US)
  Receive Date: 20130725
  Receipt Date: 20130725
  Transmission Date: 20140515
  Serious: No
  Sender: FDA-Public Use
  Company Number: US-ABBOTT-13P-163-1111916-00

PATIENT
  Sex: Female
  Weight: 64.47 kg

DRUGS (5)
  1. SYNTHROID [Suspect]
     Indication: HYPOTHYROIDISM
     Dates: start: 1997, end: 2010
  2. SYNTHROID [Suspect]
     Indication: HYPOTHYROIDISM
     Dates: start: 2010, end: 201301
  3. SYNTHROID [Suspect]
     Dosage: ONE 88 MICROGRAM TABLET ONE DAY FOLLOWED BY 100 MICROGRAM TABLET THE OTHER DAY
     Dates: start: 201301
  4. LISINOPRIL [Concomitant]
     Indication: PRODUCT USED FOR UNKNOWN INDICATION
  5. PREVASTATIN [Concomitant]
     Indication: PRODUCT USED FOR UNKNOWN INDICATION

REACTIONS (4)
  - Blood thyroid stimulating hormone increased [Unknown]
  - Anxiety [Recovered/Resolved]
  - Palpitations [Recovered/Resolved]
  - Insomnia [Recovered/Resolved]
